FAERS Safety Report 4705171-5 (Version None)
Quarter: 2005Q3

REPORT INFORMATION
  Report Type: 
  Country: None (occurrence: None)
  Receive Date: 20050701
  Receipt Date: 20031009
  Transmission Date: 20060218
  Serious: Yes (Disabling)
  Sender: FDA-Public Use
  Company Number: US-MERCK-0310USA01488

PATIENT
  Age: 88 Year
  Sex: Male

DRUGS (3)
  1. TRUSOPT [Suspect]
     Indication: GLAUCOMA
     Route: 047
     Dates: start: 19950101
  2. XALATAN [Suspect]
     Indication: GLAUCOMA
     Route: 065
     Dates: end: 20000601
  3. BETOPTIC S [Concomitant]
     Indication: GLAUCOMA
     Route: 065

REACTIONS (5)
  - ACCIDENTAL OVERDOSE [None]
  - ANAEMIA [None]
  - DIZZINESS [None]
  - DYSPNOEA [None]
  - FATIGUE [None]
